FAERS Safety Report 4676748-0 (Version None)
Quarter: 2005Q2

REPORT INFORMATION
  Report Type: 
  Country: None (occurrence: None)
  Receive Date: 20050527
  Receipt Date: 20050513
  Transmission Date: 20051028
  Serious: Yes (Hospitalization)
  Sender: FDA-Public Use
  Company Number: PHO 2005-011

PATIENT
  Age: 71 Year
  Sex: Male

DRUGS (8)
  1. PHOTOFRIN [Suspect]
     Indication: BARRETT'S OESOPHAGUS
     Dosage: APPROX 156 MG IV
     Route: 042
     Dates: start: 20050502, end: 20050502
  2. PLAVIX [Concomitant]
  3. GLIPIZIDE [Concomitant]
  4. ACIPHEX [Concomitant]
  5. COSOPT EYE DROPS [Concomitant]
  6. ALPHAGAN [Concomitant]
  7. XALATIN EYE DROPS [Concomitant]
  8. MURINE EYE DROPS [Concomitant]

REACTIONS (3)
  - ARTHRALGIA [None]
  - FATIGUE [None]
  - MYALGIA [None]
